FAERS Safety Report 14567959 (Version 1)
Quarter: 2018Q1

REPORT INFORMATION
  Report Type: Spontaneous
  Country: US (occurrence: US)
  Receive Date: 20180223
  Receipt Date: 20180223
  Transmission Date: 20180509
  Serious: No
  Sender: FDA-Public Use
  Company Number: US-009507513-1802USA010039

PATIENT
  Sex: Male

DRUGS (1)
  1. PROVENTIL [Suspect]
     Active Substance: ALBUTEROL
     Dosage: UNK, PRN (AS NEEDED)

REACTIONS (4)
  - No adverse event [Unknown]
  - Device malfunction [Unknown]
  - Product quality issue [Unknown]
  - Incorrect dose administered [Unknown]
